FAERS Safety Report 19419693 (Version 1)
Quarter: 2021Q2

REPORT INFORMATION
  Report Type: Report from Study
  Country: DE (occurrence: DE)
  Receive Date: 20210616
  Receipt Date: 20210616
  Transmission Date: 20210717
  Serious: Yes (Hospitalization)
  Sender: FDA-Public Use
  Company Number: DE-SUN PHARMACEUTICAL INDUSTRIES LTD-2021RR-288591

PATIENT
  Age: 57 Year
  Sex: Male

DRUGS (4)
  1. SONIDEGIB [Suspect]
     Active Substance: SONIDEGIB
     Indication: BASAL CELL CARCINOMA
     Dosage: 200 MILLIGRAM, DAILY
     Route: 048
     Dates: start: 20201020, end: 20210315
  2. ASCORVIT [Concomitant]
     Indication: PROPHYLAXIS
     Dosage: 500 MILLIGRAM, QID
     Route: 048
     Dates: start: 201906
  3. ZOMETA [Concomitant]
     Active Substance: ZOLEDRONIC ACID
     Indication: PROPHYLAXIS
     Dosage: 4 MILLIGRAM, UNK
     Route: 042
     Dates: start: 2020
  4. HUMALOG [Concomitant]
     Active Substance: INSULIN LISPRO
     Indication: PRE-EXISTING DISEASE
     Dosage: DOSE AS REQUIRED, THREE TIMES DAILY
     Route: 058
     Dates: start: 201903

REACTIONS (1)
  - Lymphoma [Not Recovered/Not Resolved]

NARRATIVE: CASE EVENT DATE: 20210303
